FAERS Safety Report 13739378 (Version 4)
Quarter: 2017Q4

REPORT INFORMATION
  Report Type: Spontaneous
  Country: GB (occurrence: GB)
  Receive Date: 20170710
  Receipt Date: 20171226
  Transmission Date: 20180320
  Serious: Yes (Hospitalization, Other)
  Sender: FDA-Public Use
  Company Number: GB-ALLERGAN-1728329US

PATIENT
  Age: 59 Year
  Sex: Female

DRUGS (8)
  1. THIOPENTAL [Concomitant]
     Active Substance: THIOPENTAL
  2. ATORVASTATIN CALCIUM. [Concomitant]
     Active Substance: ATORVASTATIN CALCIUM
     Dosage: UNK
  3. SERTRALINE [Concomitant]
     Active Substance: SERTRALINE HYDROCHLORIDE
  4. BISOPROLOL [Concomitant]
     Active Substance: BISOPROLOL
  5. BOTOX [Suspect]
     Active Substance: ONABOTULINUMTOXINA
     Indication: ANAL FISSURE
     Dosage: 50 UNITS, SINGLE
     Route: 030
     Dates: start: 20170623, end: 20170623
  6. OMEPRAZOL [Concomitant]
     Active Substance: OMEPRAZOLE
  7. ASPIRIN E.C [Concomitant]
     Active Substance: ASPIRIN
     Route: 065
  8. RAMIPRIL. [Concomitant]
     Active Substance: RAMIPRIL

REACTIONS (3)
  - Generalised tonic-clonic seizure [Recovered/Resolved]
  - Blood bilirubin increased [Recovered/Resolved]
  - Off label use [Unknown]

NARRATIVE: CASE EVENT DATE: 20170623
